FAERS Safety Report 9146880 (Version 1)
Quarter: 2014Q1

REPORT INFORMATION
  Report Type: Spontaneous
  Country: US (occurrence: None)
  Receive Date: 20130228
  Receipt Date: 20130228
  Transmission Date: 20141002
  Serious: Yes (Hospitalization)
  Sender: FDA-Public Use
  Company Number: None

PATIENT
  Age: 28 Year
  Sex: Male
  Weight: 127.5 kg

DRUGS (4)
  1. NULOJIX [Suspect]
     Indication: RENAL TRANSPLANT
     Dosage: Q 4 WEEKS IV
     Route: 042
     Dates: start: 20130214
  2. CELLCEPT [Suspect]
     Indication: RENAL TRANSPLANT
     Dates: end: 20120626
  3. ALEMTUZUMAB [Concomitant]
  4. METHYLPREDISOLONE [Concomitant]

REACTIONS (2)
  - Hyperkeratosis [None]
  - Skin ulcer [None]
